FAERS Safety Report 9408257 (Version 1)
Quarter: 2013Q3

REPORT INFORMATION
  Report Type: Report from Study
  Country: CA (occurrence: CA)
  Receive Date: 20130718
  Receipt Date: 20130718
  Transmission Date: 20140515
  Serious: Yes (Congenital Anomaly)
  Sender: FDA-Public Use
  Company Number: CA-PFIZER INC-2013201260

PATIENT
  Sex: 0

DRUGS (3)
  1. GABAPENTIN [Suspect]
     Indication: PAIN
     Dosage: 600 MG/DAY
     Route: 064
  2. BROMAZEPAM [Concomitant]
     Dosage: UNK
     Route: 064
  3. VENLAFAXINE [Concomitant]
     Dosage: UNK
     Route: 064

REACTIONS (2)
  - Maternal exposure during pregnancy [Unknown]
  - Talipes [Unknown]
